FAERS Safety Report 9283710 (Version 1)
Quarter: 2013Q2

REPORT INFORMATION
  Report Type: Spontaneous
  Country: TR (occurrence: None)
  Receive Date: 20130506
  Receipt Date: 20130506
  Transmission Date: 20140414
  Serious: Yes (Other)
  Sender: FDA-Public Use
  Company Number: SYM-2013-03231

PATIENT
  Age: 43 Year
  Sex: Male

DRUGS (3)
  1. FLUOROURACIL (FLUOROURACIL) (FLUOROURACIL) [Suspect]
     Indication: GASTRIC CANCER
  2. TAXOTERE [Suspect]
     Indication: GASTRIC CANCER
  3. CISPLATIN [Suspect]
     Indication: GASTRIC CANCER

REACTIONS (1)
  - Peripheral embolism [None]
